FAERS Safety Report 22595395 (Version 1)
Quarter: 2023Q2

REPORT INFORMATION
  Report Type: Spontaneous
  Country: CH (occurrence: CH)
  Receive Date: 20230613
  Receipt Date: 20230613
  Transmission Date: 20230722
  Serious: Yes (Other)
  Sender: FDA-Public Use
  Company Number: CH-TAKEDA-2023TUS057666

PATIENT
  Age: 44 Year
  Sex: Male

DRUGS (23)
  1. FEBUXOSTAT [Suspect]
     Active Substance: FEBUXOSTAT
     Indication: Product used for unknown indication
     Dosage: 40 MILLIGRAM, QD
     Route: 065
     Dates: start: 20230323, end: 20230410
  2. COLCHICINE [Suspect]
     Active Substance: COLCHICINE
     Indication: Product used for unknown indication
     Dosage: 0.5 MILLIGRAM, QD
     Route: 048
     Dates: start: 2016, end: 20230411
  3. MORPHINE [Suspect]
     Active Substance: MORPHINE
     Indication: Product used for unknown indication
     Dosage: UNK
     Route: 065
     Dates: start: 20230404, end: 20230409
  4. HEPARIN [Suspect]
     Active Substance: HEPARIN SODIUM
     Indication: Product used for unknown indication
     Dosage: UNK
     Route: 065
     Dates: start: 202303, end: 20230404
  5. EZETIMIBE\SIMVASTATIN [Suspect]
     Active Substance: EZETIMIBE\SIMVASTATIN
     Indication: Product used for unknown indication
     Dosage: UNK UNK, QD
     Route: 048
     Dates: end: 20230403
  6. BUPRENORPHINE HYDROCHLORIDE [Suspect]
     Active Substance: BUPRENORPHINE HYDROCHLORIDE
     Indication: Product used for unknown indication
     Dosage: 0.4 MILLIGRAM
     Route: 065
     Dates: start: 20230409, end: 20230412
  7. DAFALGAN [Suspect]
     Active Substance: ACETAMINOPHEN
     Indication: Product used for unknown indication
     Dosage: UNK
     Route: 065
     Dates: end: 20230411
  8. EZETIMIBE [Suspect]
     Active Substance: EZETIMIBE
     Indication: Product used for unknown indication
     Dosage: 10 MILLIGRAM, QD
     Route: 048
     Dates: start: 20230404, end: 20230411
  9. PREDNISONE [Concomitant]
     Active Substance: PREDNISONE
     Dosage: 25 MILLIGRAM, QD
     Route: 065
     Dates: start: 20230322, end: 20230322
  10. PREDNISONE [Concomitant]
     Active Substance: PREDNISONE
     Dosage: 20 MILLIGRAM, QD
     Route: 065
     Dates: start: 20230323, end: 20230323
  11. PREDNISONE [Concomitant]
     Active Substance: PREDNISONE
     Dosage: 15 MILLIGRAM, QD
     Route: 065
     Dates: start: 20230324, end: 20230324
  12. PREDNISONE [Concomitant]
     Active Substance: PREDNISONE
     Dosage: 10 MILLIGRAM, QD
     Route: 065
     Dates: start: 20230325, end: 20230325
  13. PREDNISONE [Concomitant]
     Active Substance: PREDNISONE
     Dosage: 5 MILLIGRAM, QD
     Route: 065
     Dates: start: 20230326, end: 20230326
  14. SINTROM [Concomitant]
     Active Substance: ACENOCOUMAROL
     Dosage: UNK
     Route: 065
  15. ENOXAPARIN SODIUM [Concomitant]
     Active Substance: ENOXAPARIN SODIUM
     Dosage: UNK
     Route: 065
  16. EDARBI [Concomitant]
     Active Substance: AZILSARTAN KAMEDOXOMIL
     Dosage: UNK
     Route: 065
  17. EDARBYCLOR [Concomitant]
     Active Substance: AZILSARTAN KAMEDOXOMIL\CHLORTHALIDONE
     Dosage: UNK
     Route: 065
  18. RENVELA [Concomitant]
     Active Substance: SEVELAMER CARBONATE
     Dosage: UNK
     Route: 065
  19. DAPAGLIFLOZIN [Concomitant]
     Active Substance: DAPAGLIFLOZIN
     Dosage: UNK
     Route: 065
  20. ESOMEPRAZOLE [Concomitant]
     Active Substance: ESOMEPRAZOLE
     Dosage: UNK
     Route: 065
  21. EUTHYROX [Concomitant]
     Active Substance: LEVOTHYROXINE SODIUM
     Dosage: UNK
     Route: 065
  22. SIMVASTATIN [Concomitant]
     Active Substance: SIMVASTATIN
     Dosage: UNK
     Route: 065
     Dates: start: 20230404
  23. TRAMADOL [Concomitant]
     Active Substance: TRAMADOL
     Dosage: UNK
     Route: 065
     Dates: start: 20230404

REACTIONS (1)
  - Cholestatic liver injury [Recovered/Resolved]

NARRATIVE: CASE EVENT DATE: 20230411
